FAERS Safety Report 10758666 (Version 1)
Quarter: 2015Q1

REPORT INFORMATION
  Report Type: Spontaneous
  Country: US (occurrence: US)
  Receive Date: 20150203
  Receipt Date: 20150203
  Transmission Date: 20150721
  Serious: Yes (Other)
  Sender: FDA-Public Use
  Company Number: US-ACTAVIS-2015-00996

PATIENT
  Sex: Female

DRUGS (1)
  1. AMETHYST [Suspect]
     Active Substance: ETHINYL ESTRADIOL\LEVONORGESTREL
     Indication: ORAL CONTRACEPTION
     Dosage: 1 DF, DAILY
     Route: 048
     Dates: start: 2010, end: 201412

REACTIONS (1)
  - Mesenteric neoplasm [Not Recovered/Not Resolved]

NARRATIVE: CASE EVENT DATE: 2013
